FAERS Safety Report 6467115-8 (Version None)
Quarter: 2009Q4

REPORT INFORMATION
  Report Type: 
  Country: None (occurrence: None)
  Receive Date: 20091127
  Receipt Date: 20091111
  Transmission Date: 20100525
  Serious: Yes (Other)
  Sender: FDA-Public Use
  Company Number: 2009AL007264

PATIENT
  Age: 87 Year
  Sex: Male

DRUGS (11)
  1. GABAPENTIN [Suspect]
     Indication: NEURALGIA
     Dosage: 300 MG;TID
     Dates: start: 20080827, end: 20090701
  2. OXYBUTYNIN CHLORIDE [Concomitant]
  3. HYDROCHLORIDE [Concomitant]
  4. PREGABALIN [Concomitant]
  5. PREDNISOLONE [Concomitant]
  6. OMEPRADEX [Concomitant]
  7. ACYCLOVIR [Concomitant]
  8. FUSIDIC ACID [Concomitant]
  9. TAMSULOSIN [Concomitant]
  10. BENDROFLUMETHIAZIDE [Concomitant]
  11. INFLUENZA VIRUS VACCINE [Concomitant]

REACTIONS (15)
  - ACTINIC KERATOSIS [None]
  - BASAL CELL CARCINOMA [None]
  - BLADDER OBSTRUCTION [None]
  - CONJUNCTIVITIS [None]
  - FALL [None]
  - H1N1 INFLUENZA [None]
  - LIP DISORDER [None]
  - LIPOMA [None]
  - LOSS OF CONSCIOUSNESS [None]
  - MELANOCYTIC NAEVUS [None]
  - MOUTH INJURY [None]
  - PAIN IN EXTREMITY [None]
  - POROCARCINOMA [None]
  - SQUAMOUS CELL CARCINOMA [None]
  - SYNCOPE [None]
